FAERS Safety Report 14679144 (Version 5)
Quarter: 2019Q3

REPORT INFORMATION
  Report Type: Report from Study
  Country: KR (occurrence: KR)
  Receive Date: 20180326
  Receipt Date: 20190827
  Transmission Date: 20191004
  Serious: Yes (Hospitalization, Other)
  Sender: FDA-Public Use
  Company Number: PHHY2018KR036633

PATIENT
  Age: 71 Year
  Sex: Female
  Weight: 55 kg

DRUGS (2)
  1. EVEROLIMUS. [Suspect]
     Active Substance: EVEROLIMUS
     Indication: RENAL CELL CARCINOMA
     Dosage: 5 MG, QD
     Route: 048
     Dates: start: 20171129, end: 20180217
  2. LENVATINIB [Suspect]
     Active Substance: LENVATINIB
     Indication: RENAL CELL CARCINOMA
     Dosage: 18 MG (OR 14 MG), QD
     Route: 048
     Dates: start: 20171129, end: 20180217

REACTIONS (9)
  - Acute febrile neutrophilic dermatosis [Recovered/Resolved]
  - Pyrexia [Unknown]
  - Chills [Unknown]
  - Panniculitis lobular [Unknown]
  - Rash [Unknown]
  - Autoinflammatory disease [Unknown]
  - Neutrophil count increased [Unknown]
  - Myalgia [Unknown]
  - Infection [Unknown]

NARRATIVE: CASE EVENT DATE: 20180214
